FAERS Safety Report 11807848 (Version 1)
Quarter: 2015Q4

REPORT INFORMATION
  Report Type: Spontaneous
  Country: FR (occurrence: FR)
  Receive Date: 20151207
  Receipt Date: 20151207
  Transmission Date: 20160305
  Serious: Yes (Other)
  Sender: FDA-Public Use
  Company Number: FR-SA-2015SA197094

PATIENT
  Age: 43 Year
  Sex: Female

DRUGS (7)
  1. ZYMAD [Concomitant]
     Active Substance: CHOLECALCIFEROL
     Dosage: IN AMPOULE
  2. LAROXYL [Concomitant]
     Active Substance: AMITRIPTYLINE
  3. INEXIUM [Concomitant]
     Active Substance: ESOMEPRAZOLE
  4. MOTILIUM [Concomitant]
     Active Substance: DOMPERIDONE
  5. LEXOMIL [Concomitant]
     Active Substance: BROMAZEPAM
  6. AUBAGIO [Suspect]
     Active Substance: TERIFLUNOMIDE
     Indication: MULTIPLE SCLEROSIS
     Route: 048
     Dates: start: 201508
  7. HYDROCORTISONE. [Concomitant]
     Active Substance: HYDROCORTISONE

REACTIONS (1)
  - Hypercreatininaemia [Not Recovered/Not Resolved]

NARRATIVE: CASE EVENT DATE: 20150828
